FAERS Safety Report 19280473 (Version 1)
Quarter: 2021Q2

REPORT INFORMATION
  Report Type: Spontaneous
  Country: US (occurrence: US)
  Receive Date: 20210521
  Receipt Date: 20210521
  Transmission Date: 20210717
  Serious: No
  Sender: FDA-Public Use
  Company Number: US-SA-2021SA165369

PATIENT
  Age: 14 Year
  Sex: Female

DRUGS (1)
  1. DUPIXENT [Suspect]
     Active Substance: DUPILUMAB
     Indication: DERMATITIS ATOPIC
     Dosage: FREQUENCY: OTHER
     Route: 058
     Dates: start: 202103

REACTIONS (3)
  - Product dose omission in error [Unknown]
  - Skin exfoliation [Unknown]
  - Dermatitis [Unknown]

NARRATIVE: CASE EVENT DATE: 2021
